FAERS Safety Report 6973306-X (Version None)
Quarter: 2010Q3

REPORT INFORMATION
  Report Type: 
  Country: None (occurrence: None)
  Receive Date: 20100907
  Receipt Date: 20100830
  Transmission Date: 20110219
  Serious: Yes (Hospitalization, Other)
  Sender: FDA-Public Use
  Company Number: IDR-00407

PATIENT
  Age: 64 Year
  Sex: Male
  Weight: 104.3273 kg

DRUGS (4)
  1. INDERAL LA [Suspect]
     Indication: VENTRICULAR EXTRASYSTOLES
     Dosage: 1 CAPSULE DAILY
  2. SIMVASTATIN [Concomitant]
  3. METFORMIN [Concomitant]
  4. ASPIRIN [Concomitant]

REACTIONS (3)
  - CARDIAC FLUTTER [None]
  - DRUG INEFFECTIVE [None]
  - VENTRICULAR EXTRASYSTOLES [None]
